FAERS Safety Report 8193560 (Version 6)
Quarter: 2015Q2

REPORT INFORMATION
  Report Type: Report from Study
  Country: FR (occurrence: FR)
  Receive Date: 20111021
  Receipt Date: 20150605
  Transmission Date: 20150821
  Serious: Yes (Hospitalization, Other)
  Sender: FDA-Public Use
  Company Number: PHHY2011FR90872

PATIENT
  Age: 47 Year
  Sex: Male
  Weight: 87 kg

DRUGS (1)
  1. ILARIS [Suspect]
     Active Substance: CANAKINUMAB
     Indication: MUCKLE-WELLS SYNDROME
     Dosage: 150 MG, EVERY 8 WEEKS
     Route: 058
     Dates: start: 20110221

REACTIONS (24)
  - Pain in extremity [Unknown]
  - Asthenopia [Unknown]
  - Infection [Unknown]
  - Erythema [Unknown]
  - Peripheral ischaemia [Recovered/Resolved with Sequelae]
  - Skin necrosis [Recovered/Resolved with Sequelae]
  - Osteonecrosis [Recovered/Resolved with Sequelae]
  - Vision blurred [Unknown]
  - C-reactive protein increased [Unknown]
  - Gamma-glutamyltransferase increased [Unknown]
  - Malnutrition [Recovered/Resolved with Sequelae]
  - Weight increased [Unknown]
  - Cyanosis [Unknown]
  - Inflammation [Unknown]
  - Segmented hyalinising vasculitis [Unknown]
  - Blood pressure systolic increased [Unknown]
  - Gout [Unknown]
  - Hypercholesterolaemia [Recovered/Resolved]
  - Conjunctivitis [Unknown]
  - Peripheral swelling [Unknown]
  - Disease complication [Unknown]
  - Phlebitis [Unknown]
  - Arterial disorder [Recovered/Resolved]
  - Dermatitis [Unknown]

NARRATIVE: CASE EVENT DATE: 20110706
